FAERS Safety Report 9155739 (Version 3)
Quarter: 2013Q4

REPORT INFORMATION
  Report Type: Spontaneous
  Country: CO (occurrence: CO)
  Receive Date: 20130311
  Receipt Date: 20131029
  Transmission Date: 20140711
  Serious: Yes (Hospitalization, Other)
  Sender: FDA-Public Use
  Company Number: CO-AMGEN-COLSP2013016682

PATIENT
  Age: 79 Year
  Sex: Female

DRUGS (9)
  1. ENBREL [Suspect]
     Indication: RHEUMATOID ARTHRITIS
     Dosage: 50 MG, WEEKLY
     Route: 058
     Dates: start: 201202
  2. HEPARIN [Concomitant]
     Indication: VEIN DISORDER
     Dosage: UNK MG, MONTHLY
     Route: 058
     Dates: start: 2000
  3. TIROXINA [Concomitant]
     Indication: HYPOTHYROIDISM
     Dosage: 50 MG, 1X/DAY
     Route: 048
     Dates: start: 2002
  4. TIROXINA [Concomitant]
     Dosage: 100 MG, 1X/DAY
     Route: 048
  5. LOSARTAN [Concomitant]
     Indication: HYPERTENSION
     Dosage: 20 MG, 1X/DAY
     Route: 048
     Dates: start: 2003
  6. ARAVA [Concomitant]
     Indication: RHEUMATOID ARTHRITIS
     Dosage: 50 MG, 1X/DAY
     Route: 048
     Dates: start: 2003
  7. FLANTADIN [Concomitant]
     Indication: PAIN
     Dosage: 50 MG, UNK
     Route: 065
     Dates: start: 2012
  8. SALBUTAMOL [Concomitant]
     Indication: CHRONIC OBSTRUCTIVE PULMONARY DISEASE
     Dosage: UNK, AS NEEDED
     Route: 048
     Dates: start: 1963
  9. BECLOMETHASONE                     /00212602/ [Concomitant]
     Indication: CHRONIC OBSTRUCTIVE PULMONARY DISEASE
     Dosage: UNK, AS NEEDED
     Route: 048
     Dates: start: 1963

REACTIONS (4)
  - Vomiting [Recovered/Resolved]
  - Blood potassium decreased [Recovered/Resolved]
  - Gangrene [Not Recovered/Not Resolved]
  - Arthropathy [Unknown]
